FAERS Safety Report 25346194 (Version 1)
Quarter: 2025Q2

REPORT INFORMATION
  Report Type: Spontaneous
  Country: US (occurrence: US)
  Receive Date: 20250522
  Receipt Date: 20250522
  Transmission Date: 20250717
  Serious: Yes (Other)
  Sender: STRIDES
  Company Number: US-STRIDES NORDIC APS-2025SP006193

PATIENT

DRUGS (6)
  1. COLCHICINE [Suspect]
     Active Substance: COLCHICINE
     Indication: Cardiovascular event prophylaxis
     Route: 065
  2. COLCHICINE [Suspect]
     Active Substance: COLCHICINE
     Indication: Pericardial effusion
  3. COLCHICINE [Suspect]
     Active Substance: COLCHICINE
     Indication: Cardiac tamponade
  4. TRIAMCINOLONE [Suspect]
     Active Substance: TRIAMCINOLONE
     Indication: Pericardial effusion
     Route: 032
  5. TRIAMCINOLONE [Suspect]
     Active Substance: TRIAMCINOLONE
     Indication: Cardiovascular event prophylaxis
  6. TRIAMCINOLONE [Suspect]
     Active Substance: TRIAMCINOLONE
     Indication: Cardiac tamponade

REACTIONS (3)
  - Pericardial effusion [Unknown]
  - Pericarditis [Unknown]
  - Drug ineffective for unapproved indication [Unknown]
